FAERS Safety Report 5933897-4 (Version None)
Quarter: 2008Q4

REPORT INFORMATION
  Report Type: 
  Country: None (occurrence: None)
  Receive Date: 20081029
  Receipt Date: 20081024
  Transmission Date: 20090506
  Serious: Yes (Death)
  Sender: FDA-Public Use
  Company Number: US-BRISTOL-MYERS SQUIBB COMPANY-14374417

PATIENT
  Age: 78 Year
  Sex: Female

DRUGS (3)
  1. ABILIFY [Suspect]
     Dosage: TAKING ABILIFY FOR YEARS
  2. QUETIAPINE FUMARATE [Suspect]
  3. CLONAZEPAM [Concomitant]

REACTIONS (2)
  - DEATH [None]
  - WEIGHT INCREASED [None]
